FAERS Safety Report 23507927 (Version 3)
Quarter: 2024Q2

REPORT INFORMATION
  Report Type: Report from Study
  Country: US (occurrence: US)
  Receive Date: 20240209
  Receipt Date: 20240511
  Transmission Date: 20240716
  Serious: No
  Sender: FDA-Public Use
  Company Number: US-AstraZeneca-CH-00558034A

PATIENT
  Age: 2 Year
  Sex: Male
  Weight: 10.9 kg

DRUGS (2)
  1. STRENSIQ [Suspect]
     Active Substance: ASFOTASE ALFA
     Indication: Hypophosphatasia
     Dosage: 18 MILLIGRAM, TIW
     Route: 058
     Dates: start: 20210612
  2. STRENSIQ [Suspect]
     Active Substance: ASFOTASE ALFA
     Dosage: 24 MILLIGRAM, TIW
     Route: 058

REACTIONS (4)
  - Snoring [Not Recovered/Not Resolved]
  - Blood creatinine decreased [Unknown]
  - Blood urea increased [Unknown]
  - Injection site hypertrophy [Unknown]

NARRATIVE: CASE EVENT DATE: 20231112
